FAERS Safety Report 10633426 (Version 1)
Quarter: 2014Q4

REPORT INFORMATION
  Report Type: Spontaneous
  Country: US (occurrence: None)
  Receive Date: 20141203
  Receipt Date: 20141203
  Transmission Date: 20150529
  Serious: Yes (Death)
  Sender: FDA-Public Use
  Company Number: FK201405628

PATIENT

DRUGS (2)
  1. HEPARIN (MANUFACTURER UNKNOWN) (HEPARIN) (HEPARIN) [Suspect]
     Active Substance: HEPARIN SODIUM
     Indication: THROMBOSIS PROPHYLAXIS
     Route: 042
  2. ALTEPLASE (ALTEPLASE) [Suspect]
     Active Substance: ALTEPLASE
     Indication: THROMBOLYSIS

REACTIONS (3)
  - Coagulation time prolonged [None]
  - Drug ineffective [None]
  - Cerebral haemorrhage [None]
